FAERS Safety Report 6673371-3 (Version None)
Quarter: 2010Q2

REPORT INFORMATION
  Report Type: 
  Country: None (occurrence: None)
  Receive Date: 20100408
  Receipt Date: 20100315
  Transmission Date: 20101027
  Serious: Yes (Hospitalization, Other)
  Sender: FDA-Public Use
  Company Number: PHEH2010US03133

PATIENT
  Sex: Female

DRUGS (6)
  1. RECLAST [Suspect]
     Dosage: UNK
     Dates: start: 20090728
  2. PAXIL [Concomitant]
     Dosage: 40 MG, UNK
  3. TRAZODONE [Concomitant]
     Dosage: 100 MG, UNK
  4. METOPROLOL TARTRATE [Concomitant]
  5. ALPRAZOLAM [Concomitant]
     Dosage: 0.5 MG, UNK
  6. ASPIRIN [Concomitant]
     Dosage: 81 MG, UNK

REACTIONS (19)
  - ASTHENIA [None]
  - CHILLS [None]
  - DENTAL CARIES [None]
  - DIZZINESS [None]
  - DRY MOUTH [None]
  - DYSGEUSIA [None]
  - DYSKINESIA [None]
  - DYSPNOEA [None]
  - EYE PRURITUS [None]
  - HEADACHE [None]
  - INFLUENZA [None]
  - MALAISE [None]
  - MUSCULAR WEAKNESS [None]
  - OROPHARYNGEAL PAIN [None]
  - PAIN [None]
  - PERSONALITY CHANGE [None]
  - RHINORRHOEA [None]
  - SINUSITIS [None]
  - WEIGHT INCREASED [None]
